FAERS Safety Report 10498408 (Version 2)
Quarter: 2014Q4

REPORT INFORMATION
  Report Type: Report from Study
  Country: CA (occurrence: CA)
  Receive Date: 20141006
  Receipt Date: 20141006
  Transmission Date: 20150528
  Serious: Yes (Death, Other)
  Sender: FDA-Public Use
  Company Number: PHHY2014CA028957

PATIENT
  Age: 86 Year
  Sex: Male

DRUGS (5)
  1. SANDOSTATIN [Suspect]
     Active Substance: OCTREOTIDE ACETATE
     Indication: OFF LABEL USE
  2. SANDOSTATIN LAR DEPOT [Suspect]
     Active Substance: OCTREOTIDE ACETATE
     Indication: THYROID CANCER
     Dosage: 30 MG, QMO
     Route: 030
     Dates: start: 20131016
  3. SANDOSTATIN LAR DEPOT [Suspect]
     Active Substance: OCTREOTIDE ACETATE
     Indication: OFF LABEL USE
  4. SUTENT [Concomitant]
     Active Substance: SUNITINIB MALATE
     Indication: NEOPLASM MALIGNANT
     Dosage: 1 DF, DAILY
     Route: 065
     Dates: start: 20140228
  5. SANDOSTATIN [Suspect]
     Active Substance: OCTREOTIDE ACETATE
     Indication: THYROID CANCER
     Dosage: 150 UG, BID
     Route: 058
     Dates: start: 20130908, end: 20131013

REACTIONS (7)
  - Blood pressure decreased [Unknown]
  - Gait disturbance [Unknown]
  - Movement disorder [Unknown]
  - Asthenia [Unknown]
  - Death [Fatal]
  - Metastases to lung [Unknown]
  - Blood pressure systolic increased [Unknown]

NARRATIVE: CASE EVENT DATE: 2014
